FAERS Safety Report 7797253-9 (Version None)
Quarter: 2011Q4

REPORT INFORMATION
  Report Type: 
  Country: None (occurrence: None)
  Receive Date: 20111005
  Receipt Date: 20111003
  Transmission Date: 20120403
  Serious: Yes (Death)
  Sender: FDA-Public Use
  Company Number: PHFR2011GB03566

PATIENT
  Sex: Male

DRUGS (3)
  1. SUNITINIB MALATE [Suspect]
     Indication: RENAL CELL CARCINOMA
     Dosage: 50 MG/ DAY
     Route: 048
  2. ZOMETA [Suspect]
     Indication: METASTASES TO BONE
     Dosage: 4 MG, QW4
     Route: 042
  3. ZOMETA [Suspect]
     Indication: RENAL CELL CARCINOMA

REACTIONS (1)
  - RENAL CELL CARCINOMA [None]
